FAERS Safety Report 12262268 (Version 1)
Quarter: 2016Q2

REPORT INFORMATION
  Report Type: Spontaneous
  Country: None (occurrence: None)
  Receive Date: 20160412
  Receipt Date: 20160412
  Transmission Date: 20160815
  Serious: No
  Sender: FDA-Public Use
  Company Number: None

PATIENT
  Age: 48 Year
  Sex: Male

DRUGS (18)
  1. MULTIPLE VITAMIN [Concomitant]
     Active Substance: VITAMINS
  2. DIAZEPAM. [Concomitant]
     Active Substance: DIAZEPAM
  3. BACLOFEN. [Concomitant]
     Active Substance: BACLOFEN
  4. PRAZOSIN [Concomitant]
     Active Substance: PRAZOSIN
  5. LORATADINE. [Concomitant]
     Active Substance: LORATADINE
  6. VIEKIRA PAK [Suspect]
     Active Substance: DASABUVIR\OMBITASVIR\PARITAPREVIR\RITONAVIR
     Indication: HEPATITIS C
     Dates: start: 20160126
  7. ADVAIR HFA [Concomitant]
     Active Substance: FLUTICASONE PROPIONATE\SALMETEROL XINAFOATE
  8. ATORVASTATIN [Concomitant]
     Active Substance: ATORVASTATIN
  9. OXYCODONE [Concomitant]
     Active Substance: OXYCODONE
  10. PROAIR HFA [Concomitant]
     Active Substance: ALBUTEROL SULFATE
  11. RIBAVIRIN. [Concomitant]
     Active Substance: RIBAVIRIN
  12. LITHIUM. [Concomitant]
     Active Substance: LITHIUM
  13. HYDROXYZINE [Concomitant]
     Active Substance: HYDROXYZINE\HYDROXYZINE HYDROCHLORIDE
  14. IBUPROFEN. [Concomitant]
     Active Substance: IBUPROFEN
  15. INSULIN [Concomitant]
     Active Substance: INSULIN NOS
  16. METFORMIN [Concomitant]
     Active Substance: METFORMIN HYDROCHLORIDE
  17. TRAZODONE [Concomitant]
     Active Substance: TRAZODONE HYDROCHLORIDE
  18. RANITIDINE. [Concomitant]
     Active Substance: RANITIDINE

REACTIONS (3)
  - Rash [None]
  - Tremor [None]
  - Contusion [None]

NARRATIVE: CASE EVENT DATE: 20160325
